FAERS Safety Report 4986915-4 (Version None)
Quarter: 2006Q2

REPORT INFORMATION
  Report Type: 
  Country: None (occurrence: None)
  Receive Date: 20060501
  Receipt Date: 20060315
  Transmission Date: 20061013
  Serious: Yes (Other)
  Sender: FDA-Public Use
  Company Number: PHEH2006US03472

PATIENT
  Age: 64 Year
  Sex: Male

DRUGS (19)
  1. ZOMETA [Suspect]
     Indication: METASTASES TO BONE
     Dosage: 4 MG Q4WEEKS
     Dates: start: 20050609
  2. ELIGARD [Concomitant]
  3. VIADUR [Concomitant]
     Indication: PROSTATE CANCER
     Dosage: UNK, UNK
     Dates: start: 20041001, end: 20051115
  4. HYTRIN [Concomitant]
     Indication: HYPERTENSION
     Dosage: 10MG, QD
  5. TYLENOL (CAPLET) [Concomitant]
     Dosage: UNK, PRN
  6. ADVIL [Concomitant]
     Dosage: UNK, PRN
  7. OMEGA 3 [Concomitant]
     Dosage: UNK, PRN
     Dates: start: 20050701
  8. KETOCONAZOLE [Concomitant]
     Dosage: 400 MG, TID
     Dates: start: 20050801
  9. REGLAN /USA/ [Concomitant]
     Dosage: 10 MG, TID
     Dates: start: 20050801
  10. PREDNISONE [Concomitant]
     Dosage: 10 MG, BID
     Dates: start: 20050801
  11. AMITRIPTYLINE HCL [Concomitant]
     Dosage: 25 MG, QD
     Dates: start: 20050901
  12. RITALIN [Concomitant]
     Dosage: 5 MG, TID
     Dates: start: 20060101
  13. PREDNISONE [Concomitant]
     Dosage: 10 MG, BID
     Dates: start: 20050801
  14. LUPRON [Concomitant]
     Dosage: 22.5 MG, Q3MONTHS
     Route: 058
     Dates: start: 20031101
  15. CASODEX [Concomitant]
     Dosage: 5 MG, DAILY
     Dates: end: 20050901
  16. TAMSULOSIN HCL [Concomitant]
     Dosage: 3 UNK, DAILY
     Dates: end: 20050901
  17. FOSAMAX [Concomitant]
     Dosage: 70 MG, WEEKLY
     Dates: end: 20050901
  18. LODINE [Concomitant]
     Dates: start: 20050501, end: 20050901
  19. VIAGRA [Concomitant]

REACTIONS (10)
  - BONE DISORDER [None]
  - EXOSTOSIS [None]
  - GINGIVAL HYPERPLASIA [None]
  - GINGIVAL RECESSION [None]
  - GINGIVITIS [None]
  - GOITRE [None]
  - OSTEONECROSIS [None]
  - PALATAL DYSPLASIA [None]
  - TENDERNESS [None]
  - WOUND DEBRIDEMENT [None]
